FAERS Safety Report 12519855 (Version 1)
Quarter: 2016Q2

REPORT INFORMATION
  Report Type: Spontaneous
  Country: US (occurrence: US)
  Receive Date: 20160630
  Receipt Date: 20160630
  Transmission Date: 20160815
  Serious: Yes (Death)
  Sender: FDA-Public Use
  Company Number: US-PFIZER INC-2016309292

PATIENT
  Age: 79 Year
  Sex: Male

DRUGS (3)
  1. AMPHOTERICIN B LIPID COMPLEX [Suspect]
     Active Substance: AMPHOTERICIN B
     Indication: ANTIFUNGAL TREATMENT
     Dosage: RANGING FROM 3 MG/KG/DAY TO 5 MG/KG/DAY
  2. FLUCYTOSINE. [Suspect]
     Active Substance: FLUCYTOSINE
     Indication: ANTIFUNGAL TREATMENT
     Dosage: UNK
  3. VORICONAZOLE. [Suspect]
     Active Substance: VORICONAZOLE
     Indication: ANTIFUNGAL TREATMENT
     Dosage: UNK

REACTIONS (5)
  - Drug ineffective [Fatal]
  - Nausea [Unknown]
  - Vomiting [Unknown]
  - Fungal infection [Fatal]
  - Disease progression [Fatal]
